FAERS Safety Report 20461127 (Version 2)
Quarter: 2022Q1

REPORT INFORMATION
  Report Type: Report from Study
  Country: US (occurrence: US)
  Receive Date: 20220211
  Receipt Date: 20220214
  Transmission Date: 20220423
  Serious: No
  Sender: FDA-Public Use
  Company Number: US-ORG100014127-2021001560

PATIENT
  Age: 44 Year
  Sex: Female

DRUGS (5)
  1. LYSODREN [Suspect]
     Active Substance: MITOTANE
     Dosage: PROGRESSIVELY UPTITRATED TO 02 TABLETS THREE TIMES PER DAY
     Route: 048
     Dates: start: 20211207
  2. COLACE CAP 100MG [Concomitant]
     Dosage: UNK
     Route: 065
  3. PRILOSEC OTC TAB 20MG [Concomitant]
     Dosage: UNK
     Route: 065
  4. PROCHLORPER TAB 10MG [Concomitant]
     Dosage: UNK
     Route: 065
  5. ZOFRAN TAB 4MG [Concomitant]
     Dosage: UNK
     Route: 065

REACTIONS (5)
  - Gastrooesophageal reflux disease [Unknown]
  - Mood altered [Not Recovered/Not Resolved]
  - Nausea [Not Recovered/Not Resolved]
  - Fatigue [Unknown]
  - Dizziness [Not Recovered/Not Resolved]

NARRATIVE: CASE EVENT DATE: 20211207
